FAERS Safety Report 10776528 (Version 3)
Quarter: 2015Q4

REPORT INFORMATION
  Report Type: Spontaneous
  Country: TR (occurrence: TR)
  Receive Date: 20150209
  Receipt Date: 20151028
  Transmission Date: 20160304
  Serious: No
  Sender: FDA-Public Use
  Company Number: TR-SA-2015SA009731

PATIENT
  Sex: Female
  Weight: 54 kg

DRUGS (5)
  1. KOLESTRAN [Concomitant]
     Indication: DRUG DETOXIFICATION
     Route: 048
     Dates: start: 20150114
  2. ARAVA [Suspect]
     Active Substance: LEFLUNOMIDE
     Indication: RHEUMATOID ARTHRITIS
     Route: 048
     Dates: start: 2007, end: 20150105
  3. BEKUNIS-TABLET [Concomitant]
     Indication: CONSTIPATION
     Route: 048
     Dates: start: 20150123
  4. GYNOFERRO SANOL [Concomitant]
     Indication: ANAEMIA
     Route: 048
     Dates: start: 20150123, end: 20150910
  5. EKSPAZ [Concomitant]
     Indication: HAEMORRHOIDS
     Route: 048
     Dates: start: 20150123

REACTIONS (1)
  - Exposure during pregnancy [Unknown]
